FAERS Safety Report 5255098-8 (Version None)
Quarter: 2007Q1

REPORT INFORMATION
  Report Type: 
  Country: None (occurrence: None)
  Receive Date: 20070305
  Receipt Date: 20070223
  Transmission Date: 20070707
  Serious: Yes (Other)
  Sender: FDA-Public Use
  Company Number: AU-AVENTIS-200711708GDDC

PATIENT
  Age: 75 Year
  Sex: Female

DRUGS (1)
  1. ARAVA [Suspect]
     Route: 048

REACTIONS (1)
  - RETINAL DETACHMENT [None]
